FAERS Safety Report 4579579-5 (Version None)
Quarter: 2005Q1

REPORT INFORMATION
  Report Type: 
  Country: None (occurrence: None)
  Receive Date: 20050210
  Receipt Date: 20050208
  Transmission Date: 20050727
  Serious: Yes (Hospitalization)
  Sender: FDA-Public Use
  Company Number: 004076

PATIENT
  Age: 14 Year
  Sex: Female

DRUGS (1)
  1. HYDROXYUREA [Suspect]
     Indication: SICKLE CELL ANAEMIA
     Dosage: 1000.00 MG, QD, ORAL
     Route: 048
     Dates: start: 20000101

REACTIONS (1)
  - ASEPTIC NECROSIS BONE [None]
